FAERS Safety Report 6768942-X (Version None)
Quarter: 2010Q2

REPORT INFORMATION
  Report Type: 
  Country: None (occurrence: None)
  Receive Date: 20100615
  Receipt Date: 20100611
  Transmission Date: 20101027
  Serious: Yes (Hospitalization)
  Sender: FDA-Public Use
  Company Number: US-BIOGENIDEC-2010BI018724

PATIENT
  Age: 26 Year
  Sex: Female

DRUGS (2)
  1. TYSABRI [Suspect]
     Indication: MULTIPLE SCLEROSIS
     Route: 042
     Dates: start: 20080702, end: 20080915
  2. TYSABRI [Suspect]
     Route: 042
     Dates: start: 20090326

REACTIONS (2)
  - DEHYDRATION [None]
  - MULTIPLE SCLEROSIS RELAPSE [None]
